FAERS Safety Report 18291584 (Version 2)
Quarter: 2020Q3

REPORT INFORMATION
  Report Type: Spontaneous
  Country: FR (occurrence: FR)
  Receive Date: 20200922
  Receipt Date: 20200922
  Transmission Date: 20201103
  Serious: Yes (Life-Threatening, Other)
  Sender: FDA-Public Use
  Company Number: FR-ALK-ABELLO A/S-2020AA002781

PATIENT

DRUGS (1)
  1. ACARIZAX [Suspect]
     Active Substance: DERMATOPHAGOIDES FARINAE\DERMATOPHAGOIDES PTERONYSSINUS
     Indication: RHINITIS
     Dosage: UNK
     Route: 060
     Dates: start: 20200109, end: 20200309

REACTIONS (6)
  - Angioedema [Recovered/Resolved]
  - Asthmatic crisis [Recovered/Resolved]
  - Rhinitis [Recovered/Resolved]
  - Dysphonia [Recovered/Resolved]
  - Asthenia [Unknown]
  - Dyspnoea [Recovered/Resolved]

NARRATIVE: CASE EVENT DATE: 20200109
